FAERS Safety Report 7565847-1 (Version None)
Quarter: 2011Q2

REPORT INFORMATION
  Report Type: 
  Country: None (occurrence: None)
  Receive Date: 20110623
  Receipt Date: 20110617
  Transmission Date: 20111010
  Serious: No
  Sender: FDA-Public Use
  Company Number: US-PFIZER INC-2011134196

PATIENT
  Sex: Female

DRUGS (18)
  1. ZITHROMAX [Suspect]
     Indication: NASAL CONGESTION
     Dosage: 250 MG, 2X/DAY
     Route: 048
     Dates: start: 20110614
  2. XYZAL [Concomitant]
     Indication: NASAL CONGESTION
  3. ZITHROMAX [Suspect]
     Dosage: 250 MG, 1X/DAY
     Dates: start: 20110615
  4. BUSPAR [Concomitant]
     Indication: ANXIETY
     Dosage: 5 MG, DAILY
     Route: 048
  5. TYLENOL W/ CODEINE [Concomitant]
     Indication: BACK DISORDER
  6. MOMETASONE [Concomitant]
     Indication: RESPIRATORY TRACT CONGESTION
     Dosage: UNK
  7. MOMETASONE [Concomitant]
     Indication: NASAL CONGESTION
  8. XYZAL [Concomitant]
     Indication: RESPIRATORY TRACT CONGESTION
     Dosage: UNK
  9. VALIUM [Concomitant]
     Indication: BACK DISORDER
     Dosage: 5 MG, DAILY
     Route: 048
  10. TYLENOL W/ CODEINE [Concomitant]
     Indication: MUSCLE DISORDER
     Dosage: 300 MG, DAILY
     Route: 048
  11. OLOPATADINE [Concomitant]
     Indication: NASAL CONGESTION
  12. VERAMYST [Concomitant]
     Indication: RESPIRATORY TRACT CONGESTION
     Dosage: UNK
  13. SYNTHROID [Concomitant]
     Indication: HYPOTHYROIDISM
     Dosage: 0.88 MG, DAILY
     Route: 048
  14. OLOPATADINE [Concomitant]
     Indication: RESPIRATORY TRACT CONGESTION
     Dosage: UNK
  15. ZITHROMAX [Suspect]
     Indication: HEADACHE
     Dosage: 250 MG, 1X/DAY
     Route: 048
     Dates: start: 20110610, end: 20110611
  16. ZITHROMAX [Suspect]
     Indication: RESPIRATORY DISORDER
     Dosage: 250 MG, 2X/DAY
     Route: 048
     Dates: start: 20110609
  17. VALIUM [Concomitant]
     Indication: MUSCLE DISORDER
  18. VERAMYST [Concomitant]
     Indication: NASAL CONGESTION

REACTIONS (3)
  - EAR DISORDER [None]
  - EAR INFECTION [None]
  - HEARING IMPAIRED [None]
